FAERS Safety Report 15010670 (Version 1)
Quarter: 2018Q2

REPORT INFORMATION
  Report Type: Spontaneous
  Country: ES (occurrence: ES)
  Receive Date: 20180614
  Receipt Date: 20180614
  Transmission Date: 20180711
  Serious: Yes (Hospitalization)
  Sender: FDA-Public Use
  Company Number: ES-JNJFOC-20180604397

PATIENT
  Age: 10 Year
  Sex: Female

DRUGS (2)
  1. IBUPROFEN. [Suspect]
     Active Substance: IBUPROFEN
     Route: 065
  2. IBUPROFEN. [Suspect]
     Active Substance: IBUPROFEN
     Indication: PYREXIA
     Route: 065

REACTIONS (5)
  - Corneal leukoma [Unknown]
  - Ulcerative keratitis [Unknown]
  - Dry eye [Unknown]
  - Photophobia [Unknown]
  - Toxic epidermal necrolysis [Unknown]
